FAERS Safety Report 18960234 (Version 1)
Quarter: 2021Q1

REPORT INFORMATION
  Report Type: Spontaneous
  Country: US (occurrence: US)
  Receive Date: 20210303
  Receipt Date: 20210303
  Transmission Date: 20210420
  Serious: No
  Sender: FDA-Public Use
  Company Number: US-TEVA-2021-US-1885205

PATIENT
  Age: 37 Year
  Sex: Female

DRUGS (1)
  1. AUSTEDO [Suspect]
     Active Substance: DEUTETRABENAZINE
     Indication: TARDIVE DYSKINESIA
     Route: 065
     Dates: start: 202102, end: 20210220

REACTIONS (3)
  - Weight increased [Unknown]
  - Treatment noncompliance [Unknown]
  - Hyperphagia [Unknown]

NARRATIVE: CASE EVENT DATE: 2021
